FAERS Safety Report 5736516-5 (Version None)
Quarter: 2008Q2

REPORT INFORMATION
  Report Type: 
  Country: None (occurrence: None)
  Receive Date: 20080513
  Receipt Date: 20080508
  Transmission Date: 20081010
  Serious: Yes (Hospitalization)
  Sender: FDA-Public Use
  Company Number: US-BRISTOL-MYERS SQUIBB COMPANY-14183917

PATIENT
  Age: 64 Year
  Sex: Male
  Weight: 82 kg

DRUGS (3)
  1. ERBITUX [Suspect]
     Indication: HEAD AND NECK CANCER
     Dosage: RECENT INFUSION DATE IS 23APR08 AND 6 INFUSION IS TAKEN.
     Route: 042
     Dates: start: 20080319, end: 20080319
  2. CISPLATIN [Suspect]
     Indication: HEAD AND NECK CANCER
     Dosage: RECENT INFUSION DATE IS 16APR08 AND 6 INFUSION IS TAKEN.
     Route: 042
     Dates: start: 20080319, end: 20080319
  3. RADIATION THERAPY [Suspect]
     Indication: HEAD AND NECK CANCER
     Dosage: 1 DOSAGE FORM = 6800CGY EXT.BEAM IMRT, 37DAYS.RECENT INFUSION DATE IS 02MAY08 AND INFUSION IS TAKEN.
     Dates: start: 20080319, end: 20080319

REACTIONS (2)
  - FEBRILE NEUTROPENIA [None]
  - STOMATITIS [None]
